FAERS Safety Report 17012754 (Version 1)
Quarter: 2019Q4

REPORT INFORMATION
  Report Type: Spontaneous
  Country: US (occurrence: US)
  Receive Date: 20191001
  Receipt Date: 20191001
  Transmission Date: 20200122
  Serious: No
  Sender: FDA-Public Use
  Company Number: None

PATIENT
  Age: 39 Year
  Sex: Female

DRUGS (1)
  1. ENBREL [Suspect]
     Active Substance: ETANERCEPT
     Route: 058
     Dates: start: 201904, end: 201906

REACTIONS (4)
  - Burning sensation [None]
  - Injection site pruritus [None]
  - Injection site urticaria [None]
  - Injection site pain [None]

NARRATIVE: CASE EVENT DATE: 20190401
